FAERS Safety Report 6817611-6 (Version None)
Quarter: 2010Q3

REPORT INFORMATION
  Report Type: 
  Country: None (occurrence: None)
  Receive Date: 20100706
  Receipt Date: 20100623
  Transmission Date: 20110219
  Serious: Yes (Other)
  Sender: FDA-Public Use
  Company Number: PHFR2010GB01082

PATIENT

DRUGS (2)
  1. SANDIMMUNE [Suspect]
     Indication: COLITIS
     Dosage: UNK
     Route: 042
     Dates: start: 20100401
  2. NEORAL [Suspect]
     Indication: COLITIS
     Dosage: UNK
     Dates: start: 20100401

REACTIONS (2)
  - COLECTOMY [None]
  - NO THERAPEUTIC RESPONSE [None]
